FAERS Safety Report 9918212 (Version 1)
Quarter: 2014Q1

REPORT INFORMATION
  Report Type: Spontaneous
  Country: NZ (occurrence: NZ)
  Receive Date: 20140223
  Receipt Date: 20140223
  Transmission Date: 20141002
  Serious: Yes (Hospitalization)
  Sender: FDA-Public Use
  Company Number: NZ-MYLANLABS-2014S1003204

PATIENT
  Age: 63 Year
  Sex: Female

DRUGS (7)
  1. ALLOPURINOL [Suspect]
     Indication: GOUT
     Dosage: 200MG DAILY
     Route: 065
  2. AMIODARONE [Suspect]
     Route: 065
  3. ASPIRIN [Concomitant]
     Route: 065
  4. SPIRONOLACTONE [Concomitant]
     Route: 065
  5. FUROSEMIDE [Concomitant]
     Route: 065
  6. METOPROLOL [Concomitant]
     Route: 065
  7. WARFARIN [Concomitant]
     Route: 065

REACTIONS (3)
  - Drug reaction with eosinophilia and systemic symptoms [Recovered/Resolved]
  - Vasculitis cerebral [Recovering/Resolving]
  - Hyperthyroidism [Unknown]
